FAERS Safety Report 10434964 (Version 1)
Quarter: 2014Q3

REPORT INFORMATION
  Report Type: Spontaneous
  Country: US (occurrence: None)
  Receive Date: 20140815
  Receipt Date: 20140815
  Transmission Date: 20150326
  Serious: No
  Sender: FDA-Public Use
  Company Number: 2014TUS005088

PATIENT
  Age: 50 Year
  Sex: Female

DRUGS (4)
  1. ATENOLOL. [Concomitant]
     Active Substance: ATENOLOL
  2. BRINTELLIX [Suspect]
     Active Substance: VORTIOXETINE HYDROBROMIDE
     Indication: MAJOR DEPRESSION
     Route: 048
     Dates: start: 201404, end: 201406
  3. BENAZEPRIL [Concomitant]
     Active Substance: BENAZEPRIL\BENAZEPRIL HYDROCHLORIDE
  4. LAMICTAL [Concomitant]
     Active Substance: LAMOTRIGINE

REACTIONS (3)
  - Headache [None]
  - Dysgeusia [None]
  - Nausea [None]
